FAERS Safety Report 24337788 (Version 1)
Quarter: 2024Q3

REPORT INFORMATION
  Report Type: Spontaneous
  Country: JP (occurrence: JP)
  Receive Date: 20240919
  Receipt Date: 20240919
  Transmission Date: 20241017
  Serious: No
  Sender: ROCHE
  Company Number: JP-CHUGAI-2023042390

PATIENT
  Age: 5 Year
  Sex: Male

DRUGS (3)
  1. TAMIFLU [Suspect]
     Active Substance: OSELTAMIVIR PHOSPHATE
     Indication: Influenza
     Route: 065
     Dates: start: 20231122, end: 20231122
  2. TAMIFLU [Suspect]
     Active Substance: OSELTAMIVIR PHOSPHATE
     Route: 065
     Dates: start: 20231123, end: 20231123
  3. TAMIFLU [Suspect]
     Active Substance: OSELTAMIVIR PHOSPHATE
     Route: 065
     Dates: start: 20231124

REACTIONS (2)
  - Abnormal behaviour [Recovering/Resolving]
  - Accidental overdose [Unknown]

NARRATIVE: CASE EVENT DATE: 20231122
